FAERS Safety Report 14994239 (Version 3)
Quarter: 2021Q3

REPORT INFORMATION
  Report Type: Spontaneous
  Country: ES (occurrence: ES)
  Receive Date: 20180611
  Receipt Date: 20210712
  Transmission Date: 20211014
  Serious: Yes (Hospitalization, Other)
  Sender: FDA-Public Use
  Company Number: ES-AUROBINDO-AUR-APL-2018-030380

PATIENT
  Age: 39 Year
  Sex: Female

DRUGS (2)
  1. QUETIAPINE. [Suspect]
     Active Substance: QUETIAPINE
     Indication: PRODUCT USED FOR UNKNOWN INDICATION
     Dosage: 200 MILLIGRAM, DAILY
     Route: 065
  2. VALPROIC ACID. [Interacting]
     Active Substance: VALPROIC ACID
     Indication: PRODUCT USED FOR UNKNOWN INDICATION
     Dosage: 1000 MILLIGRAM, DAILY
     Route: 065

REACTIONS (9)
  - Inappropriate schedule of product administration [Unknown]
  - Drug interaction [Unknown]
  - Pyrexia [Unknown]
  - Overdose [Unknown]
  - Depressed level of consciousness [Unknown]
  - Pneumonia [Unknown]
  - Affect lability [Unknown]
  - Somnolence [Unknown]
  - Treatment noncompliance [Unknown]
